FAERS Safety Report 5168379-3 (Version None)
Quarter: 2006Q4

REPORT INFORMATION
  Report Type: 
  Country: None (occurrence: None)
  Receive Date: 20061208
  Receipt Date: 20061129
  Transmission Date: 20070319
  Serious: Yes (Other)
  Sender: FDA-Public Use
  Company Number: TR-JNJFOC-20061201662

PATIENT
  Age: 23 Year
  Sex: Male

DRUGS (6)
  1. RISPERDONE [Suspect]
     Indication: SCHIZOPHRENIA
     Route: 065
  2. LYSTHENON [Suspect]
     Indication: ELECTROCONVULSIVE THERAPY
     Route: 065
  3. PROPOFOL [Suspect]
     Indication: ELECTROCONVULSIVE THERAPY
     Route: 065
  4. DIAZEPAM [Concomitant]
  5. BIPERIDENE [Concomitant]
  6. PROPRANOLOL [Concomitant]

REACTIONS (4)
  - INSOMNIA [None]
  - SUICIDAL IDEATION [None]
  - TREMOR [None]
  - VASCULITIS [None]
